FAERS Safety Report 14765411 (Version 2)
Quarter: 2018Q2

REPORT INFORMATION
  Report Type: Spontaneous
  Country: GR (occurrence: GR)
  Receive Date: 20180416
  Receipt Date: 20180425
  Transmission Date: 20180711
  Serious: Yes (Hospitalization)
  Sender: FDA-Public Use
  Company Number: GR-B.I. PHARMACEUTICALS,INC./RIDGEFIELD-2018-BI-020630

PATIENT
  Age: 86 Year
  Sex: Female

DRUGS (4)
  1. T4 [Concomitant]
     Active Substance: LEVOTHYROXINE
     Indication: HYPOTHYROIDISM
     Route: 065
  2. PRADAXA [Suspect]
     Active Substance: DABIGATRAN ETEXILATE MESYLATE
     Indication: CEREBROVASCULAR ACCIDENT PROPHYLAXIS
     Route: 048
  3. LASIX [Concomitant]
     Active Substance: FUROSEMIDE
     Indication: PRODUCT USED FOR UNKNOWN INDICATION
     Route: 065
  4. PRADAXA [Suspect]
     Active Substance: DABIGATRAN ETEXILATE MESYLATE
     Indication: ATRIAL FIBRILLATION

REACTIONS (14)
  - International normalised ratio increased [Recovering/Resolving]
  - Bilirubin conjugated increased [Unknown]
  - Ecchymosis [Recovering/Resolving]
  - Thrombocytopenia [Recovered/Resolved]
  - Fibrin D dimer increased [Unknown]
  - Blood bilirubin increased [Unknown]
  - Blood creatine phosphokinase decreased [Unknown]
  - Blood uric acid increased [Unknown]
  - Anaemia [Not Recovered/Not Resolved]
  - Activated partial thromboplastin time prolonged [Recovering/Resolving]
  - Blood glucose increased [Unknown]
  - Blood lactate dehydrogenase increased [Unknown]
  - Blood urea increased [Unknown]
  - Blood creatinine increased [Unknown]

NARRATIVE: CASE EVENT DATE: 20180411
